FAERS Safety Report 8209947-1 (Version None)
Quarter: 2012Q1

REPORT INFORMATION
  Report Type: 
  Country: None (occurrence: None)
  Receive Date: 20120314
  Receipt Date: 20110802
  Transmission Date: 20120608
  Serious: No
  Sender: FDA-Public Use
  Company Number: US-ASTRAZENECA-2011SE46634

PATIENT
  Age: 57 Year
  Sex: Female

DRUGS (2)
  1. TOPROL-XL [Suspect]
     Route: 048
  2. CRESTOR [Suspect]
     Route: 048

REACTIONS (6)
  - FALL [None]
  - CONTUSION [None]
  - HEAD INJURY [None]
  - FACE CRUSHING [None]
  - JOINT SWELLING [None]
  - HEADACHE [None]
